FAERS Safety Report 4841862-3 (Version None)
Quarter: 2005Q4

REPORT INFORMATION
  Report Type: 
  Country: None (occurrence: None)
  Receive Date: 20051130
  Receipt Date: 20050919
  Transmission Date: 20060501
  Serious: Yes (Other)
  Sender: FDA-Public Use
  Company Number: US-GLAXOSMITHKLINE-A0574795A

PATIENT
  Age: 36 Year
  Sex: Female

DRUGS (7)
  1. WELLBUTRIN [Suspect]
     Indication: DEPRESSION
     Route: 048
     Dates: start: 20050301, end: 20050701
  2. BUPROPION HYDROCHLORIDE [Suspect]
     Indication: DEPRESSION
     Dosage: 100MG TWICE PER DAY
     Route: 048
     Dates: start: 20050701
  3. ALLEGRA [Concomitant]
  4. COZAAR [Concomitant]
  5. AMBIEN [Concomitant]
  6. SPIRONOLACTONE [Concomitant]
  7. XANAX [Concomitant]

REACTIONS (2)
  - AGGRESSION [None]
  - DRUG INEFFECTIVE [None]
